FAERS Safety Report 9769378 (Version 1)
Quarter: 2013Q3

REPORT INFORMATION
  Report Type: Spontaneous
  Country: US (occurrence: None)
  Receive Date: 20130905
  Receipt Date: 20130905
  Transmission Date: 20140515
  Serious: Yes (Death, Other)
  Sender: FDA-Public Use
  Company Number: ADR-2012-01286

PATIENT
  Age: 44 Year
  Sex: Male

DRUGS (2)
  1. LIORESAL INTRATHECAL [Suspect]
     Indication: MULTIPLE SCLEROSIS
  2. ORAL BACLOFEN [Suspect]

REACTIONS (11)
  - Hypotonia [None]
  - Device difficult to use [None]
  - Diplegia [None]
  - Bed rest [None]
  - Device dislocation [None]
  - Drug withdrawal syndrome [None]
  - Discomfort [None]
  - Device failure [None]
  - Pain [None]
  - Asthenia [None]
  - Muscle spasms [None]
